FAERS Safety Report 20719478 (Version 3)
Quarter: 2023Q1

REPORT INFORMATION
  Report Type: Spontaneous
  Country: BE (occurrence: BE)
  Receive Date: 20220418
  Receipt Date: 20230328
  Transmission Date: 20230418
  Serious: Yes (Hospitalization, Other)
  Sender: FDA-Public Use
  Company Number: BE-NOVARTISPH-NVSC2021BE221118

PATIENT
  Age: 72 Year
  Sex: Female

DRUGS (9)
  1. FLUCLOXACILLIN [Interacting]
     Active Substance: FLUCLOXACILLIN
     Indication: Staphylococcal sepsis
     Dosage: 6 X 1 G (ON DAY 18, HIGH DOSE)
     Route: 042
     Dates: start: 202012
  2. FLUCLOXACILLIN [Interacting]
     Active Substance: FLUCLOXACILLIN
     Indication: Staphylococcal infection
     Dosage: 6 X 2 G (2 DAYS LATER INITIATION) (~HIGH DOSE, 6 X 1 G, INCREASED TO 6 X 2 G)
     Route: 042
  3. VORICONAZOLE [Interacting]
     Active Substance: VORICONAZOLE
     Indication: Aspergillus infection
     Dosage: 6 MG/KG, Q12H (6 MILLIGRAM/KILOGRAM, BID), 6 MG/KG, 2X/DAY
     Route: 042
     Dates: start: 20201208
  4. VORICONAZOLE [Interacting]
     Active Substance: VORICONAZOLE
     Indication: Bronchopulmonary aspergillosis
     Dosage: 4 MG/KG, Q12H (4 MG/KG, 2X/DAY, DOSING WAS DOUBLED TO 8 MG/KG BID ON DAY 18
     Route: 042
  5. VORICONAZOLE [Interacting]
     Active Substance: VORICONAZOLE
     Indication: COVID-19 pneumonia
     Dosage: 8 MG/KG, Q12H (8 MILLIGRAM/KILOGRAM, BID), 8 MG/KG, 2X/DAY ON DAY 18
     Route: 042
     Dates: end: 20201215
  6. VORICONAZOLE [Interacting]
     Active Substance: VORICONAZOLE
     Indication: COVID-19
  7. CEFTRIAXONE [Concomitant]
     Active Substance: CEFTRIAXONE
     Indication: Pneumonia
     Dosage: INITIATED ON DAY 6
     Route: 065
  8. FLUCONAZOLE [Concomitant]
     Active Substance: FLUCONAZOLE
     Indication: Candida infection
     Dosage: ON DAY 9
     Route: 065
  9. AMOXICILLIN\CLAVULANIC ACID [Concomitant]
     Active Substance: AMOXICILLIN\CLAVULANIC ACID
     Indication: Product used for unknown indication
     Dosage: UNK
     Route: 065

REACTIONS (3)
  - Drug level decreased [Recovering/Resolving]
  - Drug level below therapeutic [Recovering/Resolving]
  - Drug interaction [Unknown]
